FAERS Safety Report 4406634-2 (Version None)
Quarter: 2004Q3

REPORT INFORMATION
  Report Type: 
  Country: None (occurrence: None)
  Receive Date: 20040723
  Receipt Date: 20040401
  Transmission Date: 20050211
  Serious: Yes (Death, Life-Threatening, Hospitalization, Disabling)
  Sender: FDA-Public Use
  Company Number: PHBS2004FI04538

PATIENT
  Age: 82 Year
  Sex: Female

DRUGS (8)
  1. EXELON [Suspect]
     Indication: DEMENTIA
     Dosage: 1.5 MG, BID
     Route: 048
     Dates: start: 20040220, end: 20040301
  2. EXELON [Suspect]
     Dosage: 4.5 MG/D
     Route: 048
     Dates: start: 20040302, end: 20040303
  3. EXELON [Suspect]
     Dosage: 3 MG, BID
     Route: 048
     Dates: start: 20040304, end: 20040330
  4. ASASANTIN [Concomitant]
     Indication: CEREBRAL DISORDER
     Dosage: 500 MG/D
     Route: 048
  5. CARDACE [Concomitant]
     Indication: HEARING IMPAIRED
     Dosage: 5 MG/D
     Route: 048
  6. PARA-TABS [Concomitant]
     Indication: LIMB DISCOMFORT
     Dosage: 500 MG, TID
     Route: 048
  7. LEVOLAC [Concomitant]
     Indication: CONSTIPATION
     Dosage: 20 ML/D
     Route: 065
  8. IBUSAL [Concomitant]
     Indication: PAIN
     Dosage: 400 MG, PRN
     Route: 065

REACTIONS (9)
  - ATRIOVENTRICULAR BLOCK COMPLETE [None]
  - CARDIAC ARREST [None]
  - CARDIAC ENZYMES INCREASED [None]
  - CARDIOVERSION [None]
  - CHEST PAIN [None]
  - GENERAL PHYSICAL HEALTH DETERIORATION [None]
  - INFECTION [None]
  - MYOCARDIAL INFARCTION [None]
  - RENAL IMPAIRMENT [None]
